FAERS Safety Report 9349436 (Version 1)
Quarter: 2013Q2

REPORT INFORMATION
  Report Type: Report from Study
  Country: HU (occurrence: HU)
  Receive Date: 20130614
  Receipt Date: 20130614
  Transmission Date: 20140414
  Serious: Yes (Hospitalization)
  Sender: FDA-Public Use
  Company Number: HU-BAXTER-2013BAX021467

PATIENT
  Age: 53 Year
  Sex: Female

DRUGS (21)
  1. ENDOXAN 1G POR OLDATOS INJEKCI?HOZ [Suspect]
     Indication: DIFFUSE LARGE B-CELL LYMPHOMA
     Route: 042
     Dates: start: 20130416
  2. ENDOXAN 1G POR OLDATOS INJEKCI?HOZ [Suspect]
     Route: 042
     Dates: start: 20130528
  3. RITUXIMAB [Suspect]
     Indication: DIFFUSE LARGE B-CELL LYMPHOMA
     Route: 042
     Dates: start: 20130416
  4. RITUXIMAB [Suspect]
     Route: 042
     Dates: start: 20130528
  5. DOXORUBICIN [Suspect]
     Indication: DIFFUSE LARGE B-CELL LYMPHOMA
     Route: 042
     Dates: start: 20130416
  6. VINCRISTINE [Suspect]
     Indication: DIFFUSE LARGE B-CELL LYMPHOMA
     Route: 040
     Dates: start: 20130416
  7. VINCRISTINE [Suspect]
     Route: 040
     Dates: start: 20130528
  8. PREDNISONE [Suspect]
     Indication: DIFFUSE LARGE B-CELL LYMPHOMA
     Route: 048
     Dates: start: 20130416
  9. PREDNISONE [Suspect]
     Route: 048
     Dates: start: 20130601
  10. MEGESTROL [Concomitant]
     Indication: CACHEXIA
     Dates: start: 20130422
  11. PARACETAMOLUM [Concomitant]
     Indication: PREMEDICATION
  12. PARACETAMOLUM [Concomitant]
     Indication: PYREXIA
     Dates: start: 20130507, end: 20130507
  13. PARACETAMOLUM [Concomitant]
     Indication: PAIN
     Dates: start: 20130429
  14. CHLOROPYRAMINE [Concomitant]
     Indication: PREMEDICATION
     Dates: start: 20130507, end: 20130507
  15. CLARITHROMYCIN [Concomitant]
     Indication: PRODUCT USED FOR UNKNOWN INDICATION
     Dates: start: 20130429, end: 20130505
  16. CIPROFLOXACIN [Concomitant]
     Indication: PRODUCT USED FOR UNKNOWN INDICATION
     Dates: start: 20130429, end: 20130503
  17. FAMOTIDINE [Concomitant]
     Indication: PRODUCT USED FOR UNKNOWN INDICATION
     Dates: start: 20130416
  18. ALLOPURINOL [Concomitant]
     Indication: PRODUCT USED FOR UNKNOWN INDICATION
     Dates: start: 20130416
  19. FERROUS SULFATE [Concomitant]
     Indication: IRON DEFICIENCY ANAEMIA
     Dates: start: 20130228
  20. FOLIC ACID [Concomitant]
     Indication: IRON DEFICIENCY ANAEMIA
     Dates: start: 20130228
  21. KALIUM CHLORATUM [Concomitant]
     Indication: PRODUCT USED FOR UNKNOWN INDICATION
     Dates: start: 20130507

REACTIONS (1)
  - Gastric perforation [Not Recovered/Not Resolved]
